FAERS Safety Report 10593030 (Version 1)
Quarter: 2014Q4

REPORT INFORMATION
  Report Type: Report from Study
  Country: CA (occurrence: CA)
  Receive Date: 20141119
  Receipt Date: 20141119
  Transmission Date: 20150529
  Serious: Yes (Hospitalization)
  Sender: FDA-Public Use
  Company Number: CA-JNJFOC-20141108431

PATIENT
  Sex: Female
  Weight: 3.54 kg

DRUGS (1)
  1. REMICADE [Suspect]
     Active Substance: INFLIXIMAB
     Indication: CROHN^S DISEASE
     Dosage: PARENT DOSING
     Route: 064

REACTIONS (2)
  - Dyspnoea [Recovering/Resolving]
  - Foetal exposure during pregnancy [Recovered/Resolved]
